FAERS Safety Report 7081146-9 (Version None)
Quarter: 2010Q4

REPORT INFORMATION
  Report Type: 
  Country: None (occurrence: None)
  Receive Date: 20101103
  Receipt Date: 20101026
  Transmission Date: 20110411
  Serious: Yes (Hospitalization)
  Sender: FDA-Public Use
  Company Number: B0670292A

PATIENT
  Sex: Female

DRUGS (3)
  1. REQUIP XL [Suspect]
     Indication: PARKINSON'S DISEASE
     Dosage: 119MG PER DAY
     Route: 048
  2. MADOPAR [Concomitant]
     Dosage: 125MG PER DAY
     Route: 048
  3. RASAGILINE MESYLATE [Concomitant]
     Dosage: 1MG PER DAY
     Route: 048

REACTIONS (3)
  - GAMBLING [None]
  - INTENTIONAL OVERDOSE [None]
  - SCRATCH [None]
